FAERS Safety Report 17645447 (Version 2)
Quarter: 2020Q2

REPORT INFORMATION
  Report Type: Spontaneous
  Country: US (occurrence: US)
  Receive Date: 20200408
  Receipt Date: 20200413
  Transmission Date: 20200713
  Serious: Yes (Other)
  Sender: FDA-Public Use
  Company Number: US-SA-2020SA079621

PATIENT
  Age: 51 Year
  Sex: Female

DRUGS (2)
  1. CLOPIDOGREL BISULFATE. [Suspect]
     Active Substance: CLOPIDOGREL BISULFATE
     Indication: ANTIPLATELET THERAPY
     Dosage: UNK
  2. ACETYLSALICYLIC ACID [Suspect]
     Active Substance: ASPIRIN
     Indication: ANTIPLATELET THERAPY
     Dosage: UNK

REACTIONS (7)
  - Menorrhagia [Unknown]
  - Confusional state [Unknown]
  - Cerebellar infarction [Unknown]
  - Embolism [Recovered/Resolved]
  - Cerebral infarction [Unknown]
  - Anaemia [Unknown]
  - Condition aggravated [Unknown]
